FAERS Safety Report 12105733 (Version 2)
Quarter: 2016Q1

REPORT INFORMATION
  Report Type: Spontaneous
  Country: CN (occurrence: CN)
  Receive Date: 20160223
  Receipt Date: 20160301
  Transmission Date: 20160526
  Serious: No
  Sender: FDA-Public Use
  Company Number: CN-VIIV HEALTHCARE LIMITED-CN2016GSK025134

PATIENT
  Age: 28 Year
  Sex: Female

DRUGS (4)
  1. LAMIVUDINE. [Suspect]
     Active Substance: LAMIVUDINE
     Dosage: UNK
     Route: 050
     Dates: start: 200712
  2. ADEFOVIR [Suspect]
     Active Substance: ADEFOVIR
     Indication: HEPATITIS B
     Dosage: 10 MG, QD
     Route: 050
     Dates: start: 200512
  3. ADEFOVIR [Suspect]
     Active Substance: ADEFOVIR
     Dosage: UNK
     Route: 050
     Dates: start: 200712
  4. LAMIVUDINE. [Suspect]
     Active Substance: LAMIVUDINE
     Indication: HEPATITIS B
     Dosage: UNK
     Route: 050
     Dates: start: 200705

REACTIONS (3)
  - Abortion induced [Unknown]
  - Exposure via body fluid [Unknown]
  - Exposure during pregnancy [Unknown]
